FAERS Safety Report 5131087-9 (Version None)
Quarter: 2006Q3

REPORT INFORMATION
  Report Type: 
  Country: None (occurrence: None)
  Receive Date: 20060825
  Receipt Date: 20051223
  Transmission Date: 20061208
  Serious: Yes (Hospitalization, Other)
  Sender: FDA-Public Use
  Company Number: 2005148802

PATIENT
  Age: 55 Year
  Sex: Male

DRUGS (14)
  1. VFEND [Suspect]
     Indication: BRONCHOPULMONARY ASPERGILLOSIS
     Dosage: 200 MG (100 MG, 2 IN 1 D) , ORAL
     Route: 048
     Dates: start: 20051018, end: 20051023
  2. TACROLIMUS (TACROLIMUS) [Suspect]
     Indication: GRAFT VERSUS HOST DISEASE
     Dosage: 2 MG (1 MG, 2 IN 1 D) , ORAL
     Route: 048
     Dates: start: 20050601
  3. PREDNISONE TAB [Concomitant]
  4. PROTONIX [Concomitant]
  5. SOTAOLOL (SOTALOL) [Concomitant]
  6. TACROLIMUS (TACROLIMUS) [Concomitant]
  7. HYDROXYCHLOROQUINE (HYDROZYCHLOROQUINE) [Concomitant]
  8. BACTRIM DS [Concomitant]
  9. VALTREX [Concomitant]
  10. VANCOMYCIN [Concomitant]
  11. GABAPENTIN [Concomitant]
  12. MOTRIN [Concomitant]
  13. AMBIEN (ZOLIPIDEM TARTRATE) [Concomitant]
  14. CELLCEPT [Concomitant]

REACTIONS (4)
  - BLOOD CREATINE INCREASED [None]
  - BLOOD CREATININE INCREASED [None]
  - IMMUNOSUPPRESSANT DRUG LEVEL INCREASED [None]
  - RENAL FAILURE ACUTE [None]
